FAERS Safety Report 8433098 (Version 2)
Quarter: 2015Q1

REPORT INFORMATION
  Report Type: Spontaneous
  Country: GB (occurrence: GB)
  Receive Date: 20120229
  Receipt Date: 20150319
  Transmission Date: 20150721
  Serious: Yes (Death, Other)
  Sender: FDA-Public Use
  Company Number: GB-MUTUAL PHARMACEUTICAL COMPANY, INC.-LVTM20120002

PATIENT

DRUGS (8)
  1. SIMVASTATIN 40 MG [Concomitant]
     Active Substance: SIMVASTATIN
     Indication: PRODUCT USED FOR UNKNOWN INDICATION
     Dosage: UNK
     Route: 065
  2. CODEINE 30 MG [Concomitant]
     Active Substance: CODEINE
     Indication: PRODUCT USED FOR UNKNOWN INDICATION
     Dosage: UNK
     Route: 065
  3. WARFARIN [Concomitant]
     Active Substance: WARFARIN
     Indication: PRODUCT USED FOR UNKNOWN INDICATION
     Dosage: UNK
     Route: 065
  4. DIGOXIN 125 UG [Concomitant]
     Indication: PRODUCT USED FOR UNKNOWN INDICATION
     Route: 065
  5. INDAPAMIDE 2.5 MG [Concomitant]
     Indication: PRODUCT USED FOR UNKNOWN INDICATION
     Dosage: UNK
     Route: 065
  6. LEVETIRACETAM EXTENDED-RELEASE [Suspect]
     Active Substance: LEVETIRACETAM
     Indication: CONVULSION PROPHYLAXIS
     Dosage: 250 MG, BID
     Route: 065
     Dates: start: 201103, end: 2011
  7. AMITRIPTYLINE 25 MG [Concomitant]
     Active Substance: AMITRIPTYLINE
     Indication: PRODUCT USED FOR UNKNOWN INDICATION
     Dosage: UNK
     Route: 065
  8. CITALOPRAM [Concomitant]
     Active Substance: CITALOPRAM HYDROBROMIDE
     Indication: DEPRESSION
     Dosage: UNK
     Route: 065

REACTIONS (8)
  - Depression [Recovered/Resolved]
  - Psychotic disorder [Recovered/Resolved]
  - Mobility decreased [Recovered/Resolved]
  - Delirium [Recovered/Resolved]
  - Hemiparesis [Recovered/Resolved]
  - Incontinence [Unknown]
  - Mental impairment [Recovered/Resolved]
  - Somnolence [Recovered/Resolved]

NARRATIVE: CASE EVENT DATE: 2011
